FAERS Safety Report 7558188-X (Version None)
Quarter: 2011Q2

REPORT INFORMATION
  Report Type: 
  Country: None (occurrence: None)
  Receive Date: 20110620
  Receipt Date: 20110610
  Transmission Date: 20111010
  Serious: Yes (Death, Hospitalization)
  Sender: FDA-Public Use
  Company Number: US-MUTUAL PHARMACEUTICAL COMPANY, INC.-CLHC20110020

PATIENT
  Age: 67 Year
  Sex: Female

DRUGS (1)
  1. COLCHICINE [Suspect]
     Indication: PRODUCT USED FOR UNKNOWN INDICATION
     Route: 065

REACTIONS (11)
  - HYPOTENSION [None]
  - PYREXIA [None]
  - LETHARGY [None]
  - TACHYCARDIA [None]
  - DIARRHOEA [None]
  - TACHYPNOEA [None]
  - HYPERHIDROSIS [None]
  - NAUSEA [None]
  - INAPPROPRIATE SCHEDULE OF DRUG ADMINISTRATION [None]
  - MULTI-ORGAN FAILURE [None]
  - VOMITING [None]
